FAERS Safety Report 24095853 (Version 2)
Quarter: 2025Q2

REPORT INFORMATION
  Report Type: Spontaneous
  Country: CA (occurrence: CA)
  Receive Date: 20240716
  Receipt Date: 20250415
  Transmission Date: 20250716
  Serious: Yes (Death, Other)
  Sender: SANOFI AVENTIS
  Company Number: None

PATIENT
  Age: 43 Year
  Sex: Female

DRUGS (71)
  1. KEVZARA [Suspect]
     Active Substance: SARILUMAB
     Indication: Rheumatoid arthritis
     Route: 065
  2. HYDROXYCHLOROQUINE [Suspect]
     Active Substance: HYDROXYCHLOROQUINE
     Indication: Rheumatoid arthritis
  3. HYDROXYCHLOROQUINE [Suspect]
     Active Substance: HYDROXYCHLOROQUINE
  4. LEFLUNOMIDE [Suspect]
     Active Substance: LEFLUNOMIDE
     Indication: Rheumatoid arthritis
  5. LEFLUNOMIDE [Suspect]
     Active Substance: LEFLUNOMIDE
  6. BETAMETHASONE [Suspect]
     Active Substance: BETAMETHASONE
  7. BUPRENORPHINE [Suspect]
     Active Substance: BUPRENORPHINE
  8. CANDESARTAN [Suspect]
     Active Substance: CANDESARTAN
     Indication: Rheumatoid arthritis
     Route: 048
  9. CANDESARTAN [Suspect]
     Active Substance: CANDESARTAN
     Indication: Migraine
  10. CELECOXIB [Suspect]
     Active Substance: CELECOXIB
  11. CELECOXIB [Suspect]
     Active Substance: CELECOXIB
  12. CORTISONE ACETATE [Suspect]
     Active Substance: CORTISONE ACETATE
     Indication: Rheumatoid arthritis
  13. DESOXIMETASONE [Suspect]
     Active Substance: DESOXIMETASONE
     Indication: Rheumatoid arthritis
  14. DESOXIMETASONE [Suspect]
     Active Substance: DESOXIMETASONE
     Route: 048
  15. DESOXIMETASONE [Suspect]
     Active Substance: DESOXIMETASONE
     Route: 058
  16. DESOXIMETASONE [Suspect]
     Active Substance: DESOXIMETASONE
  17. DICLOFENAC [Suspect]
     Active Substance: DICLOFENAC
  18. DOMPERIDONE [Suspect]
     Active Substance: DOMPERIDONE
  19. ERGOCALCIFEROL [Suspect]
     Active Substance: ERGOCALCIFEROL
  20. FOLIC ACID [Suspect]
     Active Substance: FOLIC ACID
     Indication: Rheumatoid arthritis
  21. FOLIC ACID [Suspect]
     Active Substance: FOLIC ACID
  22. FOLIC ACID [Suspect]
     Active Substance: FOLIC ACID
  23. FOLIC ACID [Suspect]
     Active Substance: FOLIC ACID
  24. FOLIC ACID [Suspect]
     Active Substance: FOLIC ACID
     Route: 048
  25. HYDROMORPHONE [Suspect]
     Active Substance: HYDROMORPHONE
     Indication: Rheumatoid arthritis
  26. LAMOTRIGINE [Suspect]
     Active Substance: LAMOTRIGINE
     Route: 048
  27. LAMOTRIGINE [Suspect]
     Active Substance: LAMOTRIGINE
     Route: 048
  28. LAMOTRIGINE [Suspect]
     Active Substance: LAMOTRIGINE
     Route: 048
  29. LAMOTRIGINE [Suspect]
     Active Substance: LAMOTRIGINE
  30. LAMOTRIGINE [Suspect]
     Active Substance: LAMOTRIGINE
  31. LAMOTRIGINE [Suspect]
     Active Substance: LAMOTRIGINE
  32. METHYLPREDNISOLONE [Suspect]
     Active Substance: METHYLPREDNISOLONE
  33. NAPROXEN [Suspect]
     Active Substance: NAPROXEN
     Indication: Rheumatoid arthritis
  34. NAPROXEN [Suspect]
     Active Substance: NAPROXEN
  35. OXYCODONE [Suspect]
     Active Substance: OXYCODONE
     Route: 065
  36. PANTOPRAZOLE [Suspect]
     Active Substance: PANTOPRAZOLE
  37. PHENYLEPHRINE HYDROCHLORIDE [Suspect]
     Active Substance: PHENYLEPHRINE HYDROCHLORIDE
     Indication: Rheumatoid arthritis
  38. PREDNISONE [Suspect]
     Active Substance: PREDNISONE
     Indication: Rheumatoid arthritis
  39. PREDNISONE [Suspect]
     Active Substance: PREDNISONE
  40. PREDNISONE [Suspect]
     Active Substance: PREDNISONE
  41. PREDNISONE [Suspect]
     Active Substance: PREDNISONE
     Route: 048
  42. PREDNISONE [Suspect]
     Active Substance: PREDNISONE
     Route: 048
  43. PREDNISONE [Suspect]
     Active Substance: PREDNISONE
     Route: 048
  44. PSEUDOEPHEDRINE HYDROCHLORIDE [Suspect]
     Active Substance: PSEUDOEPHEDRINE HYDROCHLORIDE
     Indication: Rheumatoid arthritis
  45. PSEUDOEPHEDRINE HYDROCHLORIDE [Suspect]
     Active Substance: PSEUDOEPHEDRINE HYDROCHLORIDE
  46. PSEUDOEPHEDRINE HYDROCHLORIDE [Suspect]
     Active Substance: PSEUDOEPHEDRINE HYDROCHLORIDE
  47. RAMIPRIL [Suspect]
     Active Substance: RAMIPRIL
     Indication: Rheumatoid arthritis
  48. RAMIPRIL [Suspect]
     Active Substance: RAMIPRIL
     Route: 016
  49. RAMIPRIL [Suspect]
     Active Substance: RAMIPRIL
     Route: 040
  50. RANITIDINE [Suspect]
     Active Substance: RANITIDINE
     Indication: Rheumatoid arthritis
  51. RANITIDINE [Suspect]
     Active Substance: RANITIDINE
     Route: 040
  52. RANITIDINE [Suspect]
     Active Substance: RANITIDINE
  53. RANITIDINE [Suspect]
     Active Substance: RANITIDINE
     Route: 058
  54. SULFASALAZINE [Suspect]
     Active Substance: SULFASALAZINE
     Indication: Rheumatoid arthritis
     Route: 048
  55. SULFASALAZINE [Suspect]
     Active Substance: SULFASALAZINE
  56. SULFASALAZINE [Suspect]
     Active Substance: SULFASALAZINE
  57. SULFASALAZINE [Suspect]
     Active Substance: SULFASALAZINE
  58. SULFASALAZINE [Suspect]
     Active Substance: SULFASALAZINE
  59. SULFASALAZINE [Suspect]
     Active Substance: SULFASALAZINE
  60. SULFASALAZINE [Suspect]
     Active Substance: SULFASALAZINE
  61. SULFASALAZINE [Suspect]
     Active Substance: SULFASALAZINE
  62. SULFASALAZINE [Suspect]
     Active Substance: SULFASALAZINE
     Route: 048
  63. TOPIRAMATE [Suspect]
     Active Substance: TOPIRAMATE
     Indication: Migraine
  64. TOPIRAMATE [Suspect]
     Active Substance: TOPIRAMATE
  65. TOPIRAMATE [Suspect]
     Active Substance: TOPIRAMATE
  66. TOPIRAMATE [Suspect]
     Active Substance: TOPIRAMATE
  67. TOPIRAMATE [Suspect]
     Active Substance: TOPIRAMATE
  68. TRAMADOL HYDROCHLORIDE [Suspect]
     Active Substance: TRAMADOL HYDROCHLORIDE
  69. TRETINOIN [Suspect]
     Active Substance: TRETINOIN
  70. ASCORBIC ACID [Suspect]
     Active Substance: ASCORBIC ACID
  71. ASCORBIC ACID [Suspect]
     Active Substance: ASCORBIC ACID

REACTIONS (20)
  - Breast cancer stage III [Fatal]
  - Duodenal ulcer perforation [Fatal]
  - Epilepsy [Fatal]
  - Liver injury [Fatal]
  - Pemphigus [Fatal]
  - Pericarditis [Fatal]
  - Pneumonia [Fatal]
  - Psoriatic arthropathy [Fatal]
  - Rheumatic fever [Fatal]
  - Rheumatoid arthritis [Fatal]
  - Systemic lupus erythematosus [Fatal]
  - Type 2 diabetes mellitus [Fatal]
  - Contraindicated product administered [Fatal]
  - Drug ineffective [Fatal]
  - Intentional product use issue [Fatal]
  - Product quality issue [Fatal]
  - Product use in unapproved indication [Fatal]
  - Product use issue [Fatal]
  - Therapeutic product effect decreased [Fatal]
  - Therapeutic product effect incomplete [Fatal]
